FAERS Safety Report 10192081 (Version 2)
Quarter: 2014Q2

REPORT INFORMATION
  Report Type: Spontaneous
  Country: US (occurrence: US)
  Receive Date: 20140523
  Receipt Date: 20140619
  Transmission Date: 20141212
  Serious: No
  Sender: FDA-Public Use
  Company Number: US-PFIZER INC-2014139525

PATIENT
  Age: 25 Year
  Sex: Male
  Weight: 99.77 kg

DRUGS (1)
  1. NICOTROL NASAL SPRAY [Suspect]
     Indication: SMOKING CESSATION THERAPY
     Dosage: UNKNOWN DOSE THREE TIMES A DAY
     Dates: start: 20140516, end: 20140516

REACTIONS (1)
  - Sneezing [Recovered/Resolved]
